FAERS Safety Report 12508177 (Version 1)
Quarter: 2016Q2

REPORT INFORMATION
  Report Type: Spontaneous
  Country: PL (occurrence: PL)
  Receive Date: 20160629
  Receipt Date: 20160629
  Transmission Date: 20160815
  Serious: Yes (Hospitalization)
  Sender: FDA-Public Use
  Company Number: PL-PFIZER INC-2016313045

PATIENT
  Sex: Female

DRUGS (1)
  1. INLYTA [Suspect]
     Active Substance: AXITINIB
     Dosage: 5 MG, 2X/DAY

REACTIONS (3)
  - General physical health deterioration [Unknown]
  - Encephalopathy [Unknown]
  - Headache [Unknown]
